FAERS Safety Report 19467172 (Version 7)
Quarter: 2021Q4

REPORT INFORMATION
  Report Type: Spontaneous
  Country: GB (occurrence: GB)
  Receive Date: 20210628
  Receipt Date: 20211229
  Transmission Date: 20220303
  Serious: Yes (Death, Hospitalization, Other)
  Sender: FDA-Public Use
  Company Number: None

PATIENT
  Age: 53 Year
  Sex: Male
  Weight: 125 kg

DRUGS (22)
  1. FUROSEMIDE [Suspect]
     Active Substance: FUROSEMIDE
     Indication: Coronary artery disease
     Dosage: 20 MILLIGRAM, QD
     Route: 048
     Dates: start: 20201125
  2. BISOPROLOL [Suspect]
     Active Substance: BISOPROLOL
     Indication: Coronary artery disease
     Dosage: 7.5 MILLIGRAM, QD
     Route: 048
     Dates: start: 2017
  3. GEMCITABINE HYDROCHLORIDE [Suspect]
     Active Substance: GEMCITABINE HYDROCHLORIDE
     Indication: Undifferentiated sarcoma
     Dosage: DOSE: 1710 MILLIGRAM, FREQUENCY:D1
     Route: 042
     Dates: start: 20210304, end: 20210304
  4. LOSARTAN POTASSIUM [Suspect]
     Active Substance: LOSARTAN POTASSIUM
     Indication: Hypertension
     Dosage: 50 MILLIGRAM, QD
     Route: 048
     Dates: start: 20201206, end: 20210308
  5. METOCLOPRAMIDE [Suspect]
     Active Substance: METOCLOPRAMIDE
     Indication: Nausea
     Dosage: 10 MG, PRN
     Route: 048
     Dates: start: 20201206, end: 2021
  6. OXYCODONE HYDROCHLORIDE [Suspect]
     Active Substance: OXYCODONE HYDROCHLORIDE
     Indication: Pelvic pain
     Dosage: 400 MILLIGRAM, QD, PATIENT ALSO RECEIVED 5 MG DOSE ON 05-NOV-2021
     Route: 048
     Dates: start: 20201105
  7. OXYCONTIN [Suspect]
     Active Substance: OXYCODONE HYDROCHLORIDE
     Indication: Product used for unknown indication
     Dosage: 40 MILLIGRAM, ONCE
     Dates: start: 20210224
  8. PEMBROLIZUMAB [Suspect]
     Active Substance: PEMBROLIZUMAB
     Indication: Pleomorphic leiomyosarcoma
     Dosage: 200 MILLIGRAM, FREQUENCY: D1
     Route: 042
     Dates: start: 20201210
  9. LIDOCAINE [Concomitant]
     Active Substance: LIDOCAINE
     Indication: Pain
     Dosage: TOPICAL, TID
     Route: 061
     Dates: start: 20201109
  10. SENOKOT [Concomitant]
     Active Substance: SENNOSIDES
     Indication: Constipation
     Dosage: 7.5 MILLIGRAM (ALSO REPORTED AS 2 TABLETS), QD
     Route: 048
     Dates: start: 20200223, end: 20210308
  11. ACETAMINOPHEN [Concomitant]
     Active Substance: ACETAMINOPHEN
     Indication: Pelvic pain
     Dosage: 1 GRAM, QD/PRN
     Route: 048
     Dates: start: 2008, end: 20210728
  12. ASPIRIN [Concomitant]
     Active Substance: ASPIRIN
     Indication: Prophylaxis
     Dosage: 75 MILLIGRAM, QD
     Route: 048
     Dates: start: 2017
  13. ATORVASTATIN [Concomitant]
     Active Substance: ATORVASTATIN
     Indication: Coronary artery disease
     Dosage: 80 MILLIGRAM, ONCE
     Route: 048
     Dates: start: 2017
  14. CLOTRIMAZOLE [Concomitant]
     Active Substance: CLOTRIMAZOLE
     Indication: Intertrigo
     Dosage: DOSE: T, BID
     Route: 061
     Dates: start: 20201123, end: 20201127
  15. DOCUSATE SODIUM [Concomitant]
     Active Substance: DOCUSATE SODIUM
     Indication: Constipation
     Dosage: 200 MILLIGRAM, BID
     Route: 048
     Dates: start: 2008
  16. GABAPENTIN [Concomitant]
     Active Substance: GABAPENTIN
     Indication: Neuralgia
     Dosage: 300 MG MORNING AND 600 MG NIGHT
     Route: 048
     Dates: start: 20201125, end: 20201127
  17. LANSOPRAZOLE [Concomitant]
     Active Substance: LANSOPRAZOLE
     Indication: Gastrooesophageal reflux disease
     Dosage: 30 MILLIGRAM, QD
     Route: 048
     Dates: start: 2017
  18. POLYETHYLENE GLYCOL 3350\POTASSIUM CHLORIDE\SODIUM BICARBONATE\SODIUM [Concomitant]
     Active Substance: POLYETHYLENE GLYCOL 3350\POTASSIUM CHLORIDE\SODIUM BICARBONATE\SODIUM CHLORIDE
     Indication: Constipation
     Dosage: DOSE: 1 SACHET, BID/PRN
     Route: 048
     Dates: start: 2008, end: 20210728
  19. LANOLIN\LIGHT MINERAL OIL\PARAFFIN [Concomitant]
     Active Substance: LANOLIN\LIGHT MINERAL OIL\PARAFFIN
     Indication: Rash
     Dosage: T TOPICAL, TID
     Route: 061
     Dates: start: 20201123, end: 2021
  20. LANOLIN [Concomitant]
     Active Substance: LANOLIN
     Indication: Rash
     Dosage: TID
     Route: 061
     Dates: start: 20201123, end: 2021
  21. MINERAL OIL EMULSION [Concomitant]
     Active Substance: MINERAL OIL EMULSION
     Indication: Rash
     Dosage: UNK, TID
     Route: 061
     Dates: start: 20201123, end: 2021
  22. PETROLATUM [Concomitant]
     Active Substance: PETROLATUM
     Indication: Rash
     Dosage: UNK, TID
     Route: 061
     Dates: start: 20201123, end: 2021

REACTIONS (12)
  - Urinary tract infection [Fatal]
  - Constipation [Fatal]
  - Pneumonia [Fatal]
  - Blood bilirubin increased [Fatal]
  - Dyspnoea [Fatal]
  - Accident [Fatal]
  - Urinary retention [Fatal]
  - Cardiac failure [Fatal]
  - Skin infection [Fatal]
  - Fall [Fatal]
  - Cellulitis [Fatal]
  - Dizziness [Fatal]

NARRATIVE: CASE EVENT DATE: 20201128
